FAERS Safety Report 9650015 (Version 1)
Quarter: 2013Q4

REPORT INFORMATION
  Report Type: Spontaneous
  Country: US (occurrence: US)
  Receive Date: 20131028
  Receipt Date: 20131028
  Transmission Date: 20140711
  Serious: No
  Sender: FDA-Public Use
  Company Number: US-PURDUE-USA-2012-0095560

PATIENT
  Sex: Male

DRUGS (6)
  1. OXYCONTIN (NDA 22-272) [Suspect]
     Indication: BACK PAIN
     Dosage: 80 MG, TID
     Route: 048
     Dates: start: 201103
  2. PHENERGAN                          /00033001/ [Concomitant]
     Indication: NAUSEA
     Dosage: 25 MG, UNK
     Route: 048
     Dates: start: 201103
  3. PHENERGAN                          /00033001/ [Concomitant]
     Indication: VOMITING
  4. ZOFRAN                             /00955301/ [Concomitant]
     Indication: NAUSEA
     Dosage: 8 MG, UNK
     Route: 048
     Dates: start: 201103
  5. ZOFRAN                             /00955301/ [Concomitant]
     Indication: VOMITING
  6. OXYCODONE                          /00045603/ [Concomitant]
     Indication: PAIN
     Dosage: 5 MG (4-5 TABLETS), PRN
     Route: 048
     Dates: start: 2012

REACTIONS (6)
  - Food poisoning [Recovered/Resolved]
  - Pain [Unknown]
  - Hyperhidrosis [Not Recovered/Not Resolved]
  - Drug ineffective [Not Recovered/Not Resolved]
  - Vomiting [Not Recovered/Not Resolved]
  - Nausea [Not Recovered/Not Resolved]
